FAERS Safety Report 9440844 (Version 1)
Quarter: 2013Q3

REPORT INFORMATION
  Report Type: Spontaneous
  Country: US (occurrence: None)
  Receive Date: 20130801
  Receipt Date: 20130801
  Transmission Date: 20140515
  Serious: Yes (Other)
  Sender: FDA-Public Use
  Company Number: AUR-APL-2013-06326

PATIENT
  Age: 62 Year
  Sex: Female

DRUGS (2)
  1. LISINOPRIL (LISINOPRIL) [Suspect]
     Indication: PRODUCT USED FOR UNKNOWN INDICATION
  2. NORVASC (AMLODIPINE BESILATE) [Suspect]
     Dosage: 10 MG (10 MG, 1 IN 1 D), ORAL
     Route: 048

REACTIONS (3)
  - Glaucoma [None]
  - Cataract [None]
  - Retinal ischaemia [None]
